FAERS Safety Report 6058388-4 (Version None)
Quarter: 2009Q1

REPORT INFORMATION
  Report Type: 
  Country: None (occurrence: None)
  Receive Date: 20090127
  Receipt Date: 20090116
  Transmission Date: 20090719
  Serious: Yes (Life-Threatening)
  Sender: FDA-Public Use
  Company Number: SPV1-2009-00072

PATIENT
  Age: 47 Year
  Sex: Female

DRUGS (3)
  1. ANAGRELIDE HYDROCHLORIDE [Suspect]
     Dosage: 1.5 MG, 1X/DAY:QD, ORAL
     Route: 048
     Dates: start: 20060401, end: 20081001
  2. HYDREA [Suspect]
     Dosage: 500 MG, 1X/DAY:QD, ORAL
     Route: 048
  3. VERCYTE [Suspect]
     Dosage: 75 MG, 1X/DAY:QD, ORAL
     Route: 048
     Dates: start: 19930101, end: 20060101

REACTIONS (1)
  - ACUTE MYELOID LEUKAEMIA [None]
